FAERS Safety Report 7349077-4 (Version None)
Quarter: 2011Q1

REPORT INFORMATION
  Report Type: 
  Country: None (occurrence: None)
  Receive Date: 20110314
  Receipt Date: 20110304
  Transmission Date: 20110831
  Serious: Yes (Hospitalization)
  Sender: FDA-Public Use
  Company Number: FR-BAXTER-2011BH004854

PATIENT
  Age: 13 Year

DRUGS (6)
  1. ADVATE [Suspect]
     Indication: HAEMOPHILIA
     Route: 065
     Dates: start: 20110125, end: 20110125
  2. ADVATE [Suspect]
     Route: 065
     Dates: start: 20110101, end: 20110101
  3. ADVATE [Suspect]
     Route: 065
  4. ADVATE [Suspect]
     Route: 065
     Dates: start: 20110126, end: 20110126
  5. ADVATE [Suspect]
     Route: 065
     Dates: start: 20110126, end: 20110126
  6. CORTICOSTEROIDS [Concomitant]
     Indication: LIMB INJURY
     Dates: start: 20110125

REACTIONS (2)
  - DRUG INEFFECTIVE [None]
  - DRUG ADMINISTRATION ERROR [None]
